FAERS Safety Report 9697651 (Version 1)
Quarter: 2013Q4

REPORT INFORMATION
  Report Type: Spontaneous
  Country: DE (occurrence: None)
  Receive Date: 20131112
  Receipt Date: 20131112
  Transmission Date: 20140711
  Serious: Yes (Life-Threatening)
  Sender: FDA-Public Use
  Company Number: GAM-355-13-DE

PATIENT
  Age: 57 Year
  Sex: Female

DRUGS (1)
  1. OCTAGRAM 5-R [Suspect]
     Indication: SECONDARY IMMUNODEFICIENCY
     Route: 042
     Dates: start: 20131030, end: 20131030

REACTIONS (4)
  - Bronchospasm [None]
  - Asthma [None]
  - Cyanosis [None]
  - Infusion related reaction [None]
